FAERS Safety Report 12294297 (Version 2)
Quarter: 2016Q3

REPORT INFORMATION
  Report Type: Spontaneous
  Country: FR (occurrence: FR)
  Receive Date: 20160422
  Receipt Date: 20160819
  Transmission Date: 20161109
  Serious: Yes (Death)
  Sender: FDA-Public Use
  Company Number: FR-SUN PHARMACEUTICAL INDUSTRIES LTD-2016RR-115292

PATIENT
  Age: 27 Year
  Sex: Female

DRUGS (5)
  1. ATRACURIUM [Suspect]
     Active Substance: ATRACURIUM
     Indication: COMPLETED SUICIDE
     Route: 065
  2. NIMBEX [Suspect]
     Active Substance: CISATRACURIUM BESYLATE
     Indication: COMPLETED SUICIDE
     Route: 065
  3. HYPNOVEL [Suspect]
     Active Substance: MIDAZOLAM\MIDAZOLAM HYDROCHLORIDE
     Indication: COMPLETED SUICIDE
     Route: 065
  4. DIPRIVAN [Suspect]
     Active Substance: PROPOFOL
     Indication: COMPLETED SUICIDE
     Route: 065
  5. AMIODARONE [Suspect]
     Active Substance: AMIODARONE
     Indication: COMPLETED SUICIDE
     Route: 065

REACTIONS (5)
  - Hypotension [Fatal]
  - Respiratory failure [Fatal]
  - Coma [Fatal]
  - Cardiogenic shock [Fatal]
  - Toxicity to various agents [Fatal]
